FAERS Safety Report 7552257-6 (Version None)
Quarter: 2011Q2

REPORT INFORMATION
  Report Type: 
  Country: None (occurrence: None)
  Receive Date: 20110616
  Receipt Date: 20030704
  Transmission Date: 20111010
  Serious: Yes (Death)
  Sender: FDA-Public Use
  Company Number: PHHO2003AT08644

PATIENT
  Sex: Male

DRUGS (8)
  1. ANDROCUR [Concomitant]
  2. COMTAN [Suspect]
     Dosage: 200 MG, TID
     Route: 048
     Dates: start: 20000601
  3. COMTAN [Suspect]
     Dosage: 200 MG, QID
     Route: 048
  4. VASONIT [Concomitant]
  5. LASIX [Concomitant]
  6. MADOPAR [Concomitant]
  7. BELOC [Concomitant]
  8. JUMEX [Concomitant]

REACTIONS (2)
  - CARDIAC FAILURE [None]
  - PROSTATE CANCER [None]
